FAERS Safety Report 6853743-4 (Version None)
Quarter: 2010Q3

REPORT INFORMATION
  Report Type: 
  Country: None (occurrence: None)
  Receive Date: 20100717
  Receipt Date: 20071212
  Transmission Date: 20110219
  Serious: Yes (Other)
  Sender: FDA-Public Use
  Company Number: US-PFIZER INC-2007106207

PATIENT
  Sex: Female
  Weight: 112.27 kg

DRUGS (5)
  1. CHANTIX [Suspect]
     Indication: SMOKING CESSATION THERAPY
     Dates: start: 20071104
  2. ZOLOFT [Concomitant]
  3. CLONAZEPAM [Concomitant]
  4. GEODON [Concomitant]
  5. OMEPRAZOLE [Concomitant]

REACTIONS (1)
  - SUICIDAL IDEATION [None]
